FAERS Safety Report 19310556 (Version 3)
Quarter: 2021Q4

REPORT INFORMATION
  Report Type: Report from Study
  Country: CA (occurrence: CA)
  Receive Date: 20210526
  Receipt Date: 20211007
  Transmission Date: 20220304
  Serious: Yes (Other)
  Sender: FDA-Public Use
  Company Number: CA-TAKEDA-2021TUS032354

PATIENT
  Age: 72 Year
  Sex: Female

DRUGS (9)
  1. VEDOLIZUMAB [Suspect]
     Active Substance: VEDOLIZUMAB
     Indication: Colitis ulcerative
     Dosage: 300 MILLIGRAM
     Route: 042
     Dates: start: 20190524
  2. VEDOLIZUMAB [Suspect]
     Active Substance: VEDOLIZUMAB
     Dosage: 300 MILLIGRAM, Q4WEEKS
     Route: 042
     Dates: start: 20210708
  3. MESALAMINE [Concomitant]
     Active Substance: MESALAMINE
     Dosage: 2.4 GRAM, QD
     Dates: start: 20180403
  4. IRON [Concomitant]
     Active Substance: IRON
     Dosage: 300 MILLIGRAM, TID
     Dates: start: 20190502
  5. JANUMET [Concomitant]
     Active Substance: METFORMIN HYDROCHLORIDE\SITAGLIPTIN PHOSPHATE
     Dosage: UNK UNK, BID
  6. LOSARTAN [Concomitant]
     Active Substance: LOSARTAN
     Dosage: UNK UNK, QD
  7. ATORVASTATIN [Concomitant]
     Active Substance: ATORVASTATIN
     Dosage: 40 MILLIGRAM, QD
  8. CALCIUM\VITAMIN D [Concomitant]
     Active Substance: CALCIUM\VITAMIN D
     Dosage: UNK
  9. PANTOPRAZOLE SODIUM [Concomitant]
     Active Substance: PANTOPRAZOLE SODIUM
     Dosage: 40 MILLIGRAM, QD
     Route: 048
     Dates: start: 2017

REACTIONS (7)
  - Post procedural haemorrhage [Unknown]
  - Gastric polyps [Unknown]
  - Rectal haemorrhage [Unknown]
  - Rectal ulcer [Unknown]
  - Proctitis [Unknown]
  - Abdominal pain [Unknown]
  - Off label use [Unknown]

NARRATIVE: CASE EVENT DATE: 20210708
